FAERS Safety Report 7814695-3 (Version None)
Quarter: 2011Q4

REPORT INFORMATION
  Report Type: 
  Country: None (occurrence: None)
  Receive Date: 20111013
  Receipt Date: 20111013
  Transmission Date: 20120403
  Serious: No
  Sender: FDA-Public Use
  Company Number: None

PATIENT
  Sex: Female
  Weight: 113.6 kg

DRUGS (3)
  1. FANAPT [Suspect]
     Indication: BIPOLAR DISORDER
     Dosage: 12M QHS P.O.
     Route: 048
     Dates: start: 20110826, end: 20110906
  2. EFFEXOR XR [Concomitant]
  3. PROVIGIL [Concomitant]

REACTIONS (1)
  - OEDEMA PERIPHERAL [None]
